FAERS Safety Report 4555587-5 (Version None)
Quarter: 2005Q1

REPORT INFORMATION
  Report Type: 
  Country: None (occurrence: None)
  Receive Date: 20041228
  Receipt Date: 20031121
  Transmission Date: 20050727
  Serious: Yes (Other)
  Sender: FDA-Public Use
  Company Number: PHEH2003US10796

PATIENT
  Age: 53 Year
  Sex: Female

DRUGS (1)
  1. AREDIA [Suspect]

REACTIONS (5)
  - ARTHROPATHY [None]
  - BLOOD MAGNESIUM DECREASED [None]
  - BLOOD PHOSPHORUS DECREASED [None]
  - MUSCLE DISORDER [None]
  - MUSCLE SPASMS [None]
